FAERS Safety Report 15269998 (Version 1)
Quarter: 2018Q3

REPORT INFORMATION
  Report Type: Spontaneous
  Country: US (occurrence: US)
  Receive Date: 20180813
  Receipt Date: 20180813
  Transmission Date: 20181010
  Serious: Yes (Other)
  Sender: FDA-Public Use
  Company Number: US-ROCHE-2167831

PATIENT
  Age: 77 Year
  Sex: Female

DRUGS (1)
  1. ACTIVASE [Suspect]
     Active Substance: ALTEPLASE
     Indication: PRODUCT USED FOR UNKNOWN INDICATION
     Route: 042
     Dates: start: 20180610

REACTIONS (3)
  - Blood pressure increased [Unknown]
  - Basal ganglia haemorrhage [Unknown]
  - Facial paralysis [Unknown]

NARRATIVE: CASE EVENT DATE: 20180610
